FAERS Safety Report 5735208-6 (Version None)
Quarter: 2008Q2

REPORT INFORMATION
  Report Type: 
  Country: None (occurrence: None)
  Receive Date: 20080512
  Receipt Date: 20080310
  Transmission Date: 20081010
  Serious: No
  Sender: FDA-Public Use
  Company Number: US-ABBOTT-08P-163-0441817-00

PATIENT
  Sex: Female
  Weight: 57.658 kg

DRUGS (2)
  1. KALETRA [Suspect]
     Indication: HIV TEST POSITIVE
     Route: 048
     Dates: start: 20080101, end: 20080307
  2. TENOFOVIR DISOPROXIL FUMARATE [Concomitant]
     Indication: HIV TEST POSITIVE
     Route: 048
     Dates: start: 20080101, end: 20080307

REACTIONS (1)
  - DIARRHOEA [None]
